FAERS Safety Report 10397484 (Version 1)
Quarter: 2014Q3

REPORT INFORMATION
  Report Type: Spontaneous
  Country: CN (occurrence: CN)
  Receive Date: 20140820
  Receipt Date: 20140820
  Transmission Date: 20150326
  Serious: Yes (Other)
  Sender: FDA-Public Use
  Company Number: CN-BAXTER-2014BAX048395

PATIENT
  Age: 73 Year
  Sex: Female
  Weight: 56 kg

DRUGS (4)
  1. NEUTRAL INSULIN [Suspect]
     Active Substance: INSULIN BEEF
     Indication: BLOOD POTASSIUM INCREASED
     Dosage: 6 UNITS
     Route: 041
     Dates: start: 20140106, end: 20140106
  2. 0.9% SODIUM CHLORIDE INJECTION [Suspect]
     Active Substance: SODIUM CHLORIDE
     Indication: ADVERSE EVENT
     Route: 041
     Dates: start: 20140106
  3. CHLORPROMAZINE HYDROCHLORIDE. [Suspect]
     Active Substance: CHLORPROMAZINE HYDROCHLORIDE
     Indication: ADVERSE EVENT
     Route: 030
  4. 5% GLUCOSE  INJECTION [Suspect]
     Active Substance: DEXTROSE
     Indication: MEDICATION DILUTION
     Route: 041
     Dates: start: 20140106, end: 20140106

REACTIONS (9)
  - Pruritus genital [Recovered/Resolved]
  - Fatigue [Unknown]
  - Discomfort [Unknown]
  - Delirium [Unknown]
  - Electrocardiogram ST-T change [Unknown]
  - Restlessness [Unknown]
  - Hypophagia [Unknown]
  - Agitation [Recovered/Resolved]
  - Sinus tachycardia [Unknown]

NARRATIVE: CASE EVENT DATE: 20140106
